FAERS Safety Report 5672896-7 (Version None)
Quarter: 2008Q1

REPORT INFORMATION
  Report Type: 
  Country: None (occurrence: None)
  Receive Date: 20080319
  Receipt Date: 20070927
  Transmission Date: 20080703
  Serious: No
  Sender: FDA-Public Use
  Company Number: US-ASTRAZENECA-2007UW22737

PATIENT
  Age: 35 Year
  Sex: Female

DRUGS (3)
  1. SYMBICORT [Suspect]
     Dosage: TWO PUFFS 80/4.5 UG
     Route: 055
  2. ANTIBIOTIC [Concomitant]
  3. FLOVENT [Concomitant]

REACTIONS (2)
  - FEELING ABNORMAL [None]
  - TREMOR [None]
